FAERS Safety Report 11369434 (Version 1)
Quarter: 2015Q3

REPORT INFORMATION
  Report Type: Spontaneous
  Country: US (occurrence: US)
  Receive Date: 20150812
  Receipt Date: 20150812
  Transmission Date: 20151125
  Serious: No
  Sender: FDA-Public Use
  Company Number: US-JNJFOC-20150609201

PATIENT
  Sex: Female

DRUGS (1)
  1. NUCYNTA [Suspect]
     Active Substance: TAPENTADOL HYDROCHLORIDE
     Indication: SURGERY
     Route: 048
     Dates: start: 2015

REACTIONS (1)
  - Logorrhoea [Unknown]

NARRATIVE: CASE EVENT DATE: 2015
